FAERS Safety Report 18402362 (Version 1)
Quarter: 2020Q4

REPORT INFORMATION
  Report Type: Spontaneous
  Country: US (occurrence: US)
  Receive Date: 20201019
  Receipt Date: 20201019
  Transmission Date: 20210114
  Serious: Yes (Other)
  Sender: FDA-Public Use
  Company Number: US-SHIRE-US202033788

PATIENT
  Sex: Female
  Weight: 89.6 kg

DRUGS (21)
  1. VITAMIN B12 [HYDROXOCOBALAMIN] [Concomitant]
     Active Substance: HYDROXOCOBALAMIN
     Indication: PERNICIOUS ANAEMIA
  2. CALCITRIOL. [Concomitant]
     Active Substance: CALCITRIOL
     Indication: HYPOPARATHYROIDISM
  3. HCTZ [Concomitant]
     Active Substance: HYDROCHLOROTHIAZIDE
     Indication: PRODUCT USED FOR UNKNOWN INDICATION
  4. T4 [Concomitant]
     Active Substance: LEVOTHYROXINE
     Indication: HYPOTHYROIDISM
  5. MAGNESIUM [Concomitant]
     Active Substance: MAGNESIUM
     Indication: PRODUCT USED FOR UNKNOWN INDICATION
  6. TUMS [Concomitant]
     Active Substance: CALCIUM CARBONATE
     Indication: HYPOPARATHYROIDISM
  7. VICTOZA [Concomitant]
     Active Substance: LIRAGLUTIDE
     Indication: OBESITY
  8. TSH [Concomitant]
     Indication: PRODUCT USED FOR UNKNOWN INDICATION
  9. FERRITIN [Concomitant]
     Active Substance: FERRITIN
     Indication: PRODUCT USED FOR UNKNOWN INDICATION
  10. REFLEXOR [GLUCOSAMINE] [Concomitant]
     Indication: PRODUCT USED FOR UNKNOWN INDICATION
  11. NATPARA (PARATHYROID HORMONE) [Suspect]
     Active Substance: PARATHYROID HORMONE
     Indication: HYPOPARATHYROIDISM
     Dosage: 100 MICROGRAM, 1X/DAY:QD
     Route: 058
  12. T3 [Concomitant]
     Active Substance: LIOTHYRONINE SODIUM
     Indication: HYPOTHYROIDISM
  13. NATPARA (PARATHYROID HORMONE) [Suspect]
     Active Substance: PARATHYROID HORMONE
     Indication: HYPOPARATHYROIDISM
     Dosage: 100 MICROGRAM, 1X/DAY:QD
     Route: 058
  14. VITAMIN D2 [Concomitant]
     Active Substance: ERGOCALCIFEROL
     Indication: HYPOPARATHYROIDISM
  15. DEXILANT [Concomitant]
     Active Substance: DEXLANSOPRAZOLE
     Indication: GASTROOESOPHAGEAL REFLUX DISEASE
     Route: 065
  16. SEMAGLUTIDE [Concomitant]
     Active Substance: SEMAGLUTIDE
     Indication: OBESITY
  17. CBC PAM [Concomitant]
     Indication: PRODUCT USED FOR UNKNOWN INDICATION
  18. IRON [Concomitant]
     Active Substance: IRON
     Indication: PRODUCT USED FOR UNKNOWN INDICATION
  19. NATPARA (PARATHYROID HORMONE) [Suspect]
     Active Substance: PARATHYROID HORMONE
     Indication: HYPOPARATHYROIDISM
     Dosage: 100 MICROGRAM, 1X/DAY:QD
     Route: 058
  20. SAXENDA [Concomitant]
     Active Substance: LIRAGLUTIDE
     Indication: OBESITY
  21. PHOSPHORUS [Concomitant]
     Active Substance: PHOSPHORUS
     Indication: PRODUCT USED FOR UNKNOWN INDICATION

REACTIONS (3)
  - Hypocalcaemia [Unknown]
  - Recalled product [Unknown]
  - Pain [Unknown]
